FAERS Safety Report 5375299-8 (Version None)
Quarter: 2007Q2

REPORT INFORMATION
  Report Type: 
  Country: None (occurrence: None)
  Receive Date: 20070629
  Receipt Date: 20061030
  Transmission Date: 20071010
  Serious: No
  Sender: FDA-Public Use
  Company Number: US-ASTRAZENECA-2006UW20779

PATIENT
  Age: 57 Year
  Sex: Female

DRUGS (5)
  1. NOLVADEX [Suspect]
     Indication: BREAST CANCER
     Route: 048
  2. PREVACID [Concomitant]
  3. COMBIVENT [Concomitant]
  4. DARVOCET [Concomitant]
  5. CLARITIN [Concomitant]

REACTIONS (1)
  - HAIR DISORDER [None]
